FAERS Safety Report 6913146-0 (Version None)
Quarter: 2010Q3

REPORT INFORMATION
  Report Type: 
  Country: None (occurrence: None)
  Receive Date: 20100806
  Receipt Date: 20090819
  Transmission Date: 20110219
  Serious: No
  Sender: FDA-Public Use
  Company Number: US-PFIZER INC-2009203946

PATIENT
  Sex: Female

DRUGS (4)
  1. DETROL [Suspect]
     Dosage: UNK
  2. NEURONTIN [Suspect]
     Dosage: UNK
  3. ZOLOFT [Suspect]
     Dosage: UNK
  4. WELLBATRIN [Suspect]
     Dosage: UNK

REACTIONS (8)
  - CANDIDIASIS [None]
  - COUGH [None]
  - FURUNCLE [None]
  - INSOMNIA [None]
  - IRRITABILITY [None]
  - MALAISE [None]
  - ORAL HERPES [None]
  - OROPHARYNGEAL PAIN [None]
